FAERS Safety Report 7600806-1 (Version None)
Quarter: 2011Q3

REPORT INFORMATION
  Report Type: 
  Country: None (occurrence: None)
  Receive Date: 20110708
  Receipt Date: 20110708
  Transmission Date: 20111222
  Serious: Yes (Life-Threatening, Other)
  Sender: FDA-Public Use
  Company Number: None

PATIENT
  Age: 42 Year
  Sex: Male
  Weight: 81.6475 kg

DRUGS (2)
  1. OXYCODONE HYDROCHLORIDE [Suspect]
     Indication: RENAL CANCER
     Dosage: 4 4 PO
     Route: 048
     Dates: start: 20110630, end: 20110707
  2. OXYCODONE HYDROCHLORIDE [Suspect]
     Indication: MUSCULOSKELETAL PAIN
     Dosage: 4 4 PO
     Route: 048
     Dates: start: 20110630, end: 20110707

REACTIONS (8)
  - MEDICATION RESIDUE [None]
  - PRODUCT QUALITY ISSUE [None]
  - PRODUCT SUBSTITUTION ISSUE [None]
  - ECONOMIC PROBLEM [None]
  - MALAISE [None]
  - PAIN [None]
  - VOMITING [None]
  - EMOTIONAL DISORDER [None]
